FAERS Safety Report 7627364-X (Version None)
Quarter: 2011Q3

REPORT INFORMATION
  Report Type: 
  Country: None (occurrence: None)
  Receive Date: 20110721
  Receipt Date: 20110711
  Transmission Date: 20111222
  Serious: No
  Sender: FDA-Public Use
  Company Number: JP-ELI_LILLY_AND_COMPANY-JP201106006892

PATIENT
  Age: 81 Year
  Sex: Female

DRUGS (8)
  1. IRBESARTAN [Concomitant]
  2. OMEPRAZOLE [Concomitant]
  3. EVISTA [Suspect]
     Dosage: UNK
     Route: 048
  4. THYRADIN [Concomitant]
  5. BIOFERMIN [Concomitant]
  6. DOGMATYL [Concomitant]
  7. WARFARIN SODIUM [Concomitant]
     Route: 048
  8. DIAZEPAM [Concomitant]

REACTIONS (1)
  - DIZZINESS [None]
